FAERS Safety Report 19775166 (Version 2)
Quarter: 2021Q3

REPORT INFORMATION
  Report Type: Spontaneous
  Country: US (occurrence: US)
  Receive Date: 20210901
  Receipt Date: 20210901
  Transmission Date: 20211014
  Serious: Yes (Hospitalization)
  Sender: FDA-Public Use
  Company Number: US-STEMLINE THERAPEUTICS, INC.-2021ST000050

PATIENT
  Age: 61 Year
  Sex: Male

DRUGS (3)
  1. ELZONRIS [Suspect]
     Active Substance: TAGRAXOFUSP-ERZS
     Dosage: CYCLE TWO
     Route: 042
  2. ELZONRIS [Suspect]
     Active Substance: TAGRAXOFUSP-ERZS
     Dosage: DAY 2 OF CYCLE 3
     Route: 042
     Dates: start: 20210823
  3. ELZONRIS [Suspect]
     Active Substance: TAGRAXOFUSP-ERZS
     Indication: BLASTIC PLASMACYTOID DENDRITIC CELL NEOPLASIA
     Dosage: CYCLE ONE
     Route: 042

REACTIONS (5)
  - Skin lesion [Recovering/Resolving]
  - Lymphadenopathy [Unknown]
  - Product dose omission issue [Recovered/Resolved]
  - Therapeutic response shortened [Recovering/Resolving]
  - White blood cell count increased [Recovering/Resolving]
